FAERS Safety Report 4866922-2 (Version None)
Quarter: 2005Q4

REPORT INFORMATION
  Report Type: 
  Country: None (occurrence: None)
  Receive Date: 20051222
  Receipt Date: 20051206
  Transmission Date: 20060501
  Serious: Yes (Death, Other)
  Sender: FDA-Public Use
  Company Number: 2005165105

PATIENT
  Age: 79 Year
  Sex: Male

DRUGS (1)
  1. VFEND [Suspect]
     Dosage: 400 MG INTRAVENOUS
     Route: 042
     Dates: start: 20051116

REACTIONS (3)
  - ACUTE MYELOID LEUKAEMIA [None]
  - DEPRESSED LEVEL OF CONSCIOUSNESS [None]
  - MALIGNANT NEOPLASM PROGRESSION [None]
